FAERS Safety Report 4502103-X (Version None)
Quarter: 2004Q4

REPORT INFORMATION
  Report Type: 
  Country: None (occurrence: None)
  Receive Date: 20041109
  Receipt Date: 20041021
  Transmission Date: 20050328
  Serious: Yes (Death)
  Sender: FDA-Public Use
  Company Number: US_020988146

PATIENT
  Age: 77 Year
  Sex: Female
  Weight: 43 kg

DRUGS (3)
  1. GEMZAR [Suspect]
     Indication: METASTASES TO LIVER
     Dosage: 800 MG/M2 OTHER
     Route: 050
     Dates: start: 20020725, end: 20020801
  2. GEMZAR [Suspect]
     Indication: PANCREATIC CARCINOMA
     Dosage: 800 MG/M2 OTHER
     Route: 050
     Dates: start: 20020725, end: 20020801
  3. KYTRIL [Concomitant]

REACTIONS (6)
  - CEREBRAL INFARCTION [None]
  - DISSEMINATED INTRAVASCULAR COAGULATION [None]
  - HEMIPLEGIA [None]
  - INTERNATIONAL NORMALISED RATIO INCREASED [None]
  - PROTHROMBIN TIME ABNORMAL [None]
  - THROMBOCYTOPENIA [None]
